FAERS Safety Report 9297190 (Version 1)
Quarter: 2013Q2

REPORT INFORMATION
  Report Type: Spontaneous
  Country: US (occurrence: None)
  Receive Date: 20130517
  Receipt Date: 20130517
  Transmission Date: 20140414
  Serious: Yes (Death)
  Sender: FDA-Public Use
  Company Number: None

PATIENT
  Age: 69 Year
  Sex: Female
  Weight: 74.4 kg

DRUGS (7)
  1. XARELTO -RIVAROXABAN- 20 MG JANSSEN PHARMACEUTICALS [Suspect]
     Indication: DEEP VEIN THROMBOSIS
     Route: 048
     Dates: start: 20130301, end: 20130508
  2. XARELTO -RIVAROXABAN- 20 MG JANSSEN PHARMACEUTICALS [Suspect]
     Indication: PULMONARY EMBOLISM
     Route: 048
     Dates: start: 20130301, end: 20130508
  3. FOLIC ACID [Concomitant]
  4. MARINOL [Concomitant]
  5. OXYCODONE [Concomitant]
  6. METOPROLOL SUCCINATE [Concomitant]
  7. ALPRAZOLAM [Concomitant]

REACTIONS (8)
  - Confusional state [None]
  - Choking [None]
  - Fall [None]
  - Unresponsive to stimuli [None]
  - Hemiparesis [None]
  - Mydriasis [None]
  - Blood pressure systolic increased [None]
  - Haemorrhage intracranial [None]
